FAERS Safety Report 26136856 (Version 1)
Quarter: 2025Q4

REPORT INFORMATION
  Report Type: Spontaneous
  Country: US (occurrence: None)
  Receive Date: 20251209
  Receipt Date: 20251209
  Transmission Date: 20260117
  Serious: No
  Sender: FDA-CTU
  Company Number: None

PATIENT
  Age: 70 Year
  Sex: Male

DRUGS (1)
  1. CEFTRIAXONE [Suspect]
     Active Substance: CEFTRIAXONE
     Indication: Upper respiratory tract infection
     Dates: start: 20250718, end: 20250719

REACTIONS (4)
  - Agitation [None]
  - Anaphylactic reaction [None]
  - Respiratory distress [None]
  - Vomiting [None]

NARRATIVE: CASE EVENT DATE: 20250719
